FAERS Safety Report 9454090 (Version 1)
Quarter: 2013Q3

REPORT INFORMATION
  Report Type: Spontaneous
  Country: US (occurrence: None)
  Receive Date: 20130809
  Receipt Date: 20130809
  Transmission Date: 20140515
  Serious: Yes (Other)
  Sender: FDA-Public Use
  Company Number: None

PATIENT
  Age: 72 Year
  Sex: Female
  Weight: 65.77 kg

DRUGS (1)
  1. PICATO [Suspect]
     Indication: PRECANCEROUS SKIN LESION
     Dosage: 3 UNIT DOSE TUBES ONCE DAILY APPPLIED TO A SURFACE, USUALLY THE SKIN
     Dates: start: 20130727, end: 20130729

REACTIONS (5)
  - Application site erythema [None]
  - Application site pain [None]
  - Application site vesicles [None]
  - Application site erosion [None]
  - Skin discolouration [None]
